FAERS Safety Report 8411697-3 (Version None)
Quarter: 2012Q2

REPORT INFORMATION
  Report Type: 
  Country: None (occurrence: None)
  Receive Date: 20120605
  Receipt Date: 20120530
  Transmission Date: 20120825
  Serious: Yes (Other)
  Sender: FDA-Public Use
  Company Number: US-PFIZER INC-2011205825

PATIENT
  Age: 90 Year
  Sex: Female

DRUGS (2)
  1. CORDARONE [Suspect]
     Indication: CARDIAC DISORDER
     Dosage: 200 MG, UNK
     Dates: start: 20060101
  2. IBUPROFEN [Suspect]
     Indication: PAIN
     Dosage: UNK

REACTIONS (5)
  - DIZZINESS [None]
  - MALAISE [None]
  - DRUG HYPERSENSITIVITY [None]
  - HEADACHE [None]
  - SURGERY [None]
